FAERS Safety Report 13951905 (Version 2)
Quarter: 2017Q3

REPORT INFORMATION
  Report Type: Spontaneous
  Country: FR (occurrence: FR)
  Receive Date: 20170910
  Receipt Date: 20170920
  Transmission Date: 20171128
  Serious: Yes (Other)
  Sender: FDA-Public Use
  Company Number: FR-MERCK KGAA-2025816

PATIENT
  Age: 54 Year
  Sex: Female

DRUGS (2)
  1. NOVOTHYROX [Suspect]
     Active Substance: LEVOTHYROXINE SODIUM
     Indication: PRODUCT USED FOR UNKNOWN INDICATION
  2. LEVOTHYROXINE SODIUM. [Suspect]
     Active Substance: LEVOTHYROXINE SODIUM
     Route: 065

REACTIONS (6)
  - General physical health deterioration [Unknown]
  - Fatigue [Unknown]
  - Weight increased [Unknown]
  - Muscle spasms [None]
  - Arrhythmia [Unknown]
  - Depression [Unknown]

NARRATIVE: CASE EVENT DATE: 201703
